FAERS Safety Report 16599949 (Version 3)
Quarter: 2019Q4

REPORT INFORMATION
  Report Type: Spontaneous
  Country: SE (occurrence: SE)
  Receive Date: 20190720
  Receipt Date: 20191106
  Transmission Date: 20200122
  Serious: Yes (Other)
  Sender: FDA-Public Use
  Company Number: SE-ROCHE-2357982

PATIENT
  Age: 35 Year
  Sex: Female

DRUGS (3)
  1. XOLAIR [Suspect]
     Active Substance: OMALIZUMAB
     Indication: FOOD ALLERGY
     Dosage: 150 MG, EVERY FOURTH WEEK (SECOND DOSE)
     Route: 065
  2. XOLAIR [Suspect]
     Active Substance: OMALIZUMAB
     Dosage: 150 MG, EVERY FOURTH WEEK (SECOND DOSE)
     Route: 065
     Dates: start: 20190708
  3. XOLAIR [Suspect]
     Active Substance: OMALIZUMAB
     Dosage: 150 MG, (FOURTH DOSE)
     Route: 065
     Dates: start: 20190916

REACTIONS (3)
  - Drug ineffective [Unknown]
  - Angina pectoris [Unknown]
  - Pyrexia [Not Recovered/Not Resolved]

NARRATIVE: CASE EVENT DATE: 20190708
